FAERS Safety Report 14858766 (Version 2)
Quarter: 2021Q2

REPORT INFORMATION
  Report Type: Spontaneous
  Country: US (occurrence: US)
  Receive Date: 20180508
  Receipt Date: 20210602
  Transmission Date: 20210716
  Serious: Yes (Disabling)
  Sender: FDA-Public Use
  Company Number: US-TEVA-773457USA

PATIENT
  Age: 54 Year
  Sex: Female
  Weight: 70 kg

DRUGS (7)
  1. TAMOXIFEN [Concomitant]
     Active Substance: TAMOXIFEN
  2. DOCETAXEL SAGENT [Suspect]
     Active Substance: DOCETAXEL
     Dosage: 80MG/ML VIAL, NUMBER OF CYCLE ? 6, FREQUENCY: EVERY 3 WEEKS, DOSAGE: 130MG
     Dates: start: 20140821, end: 20141126
  3. CARBOPLATIN. [Suspect]
     Active Substance: CARBOPLATIN
     Indication: BREAST CANCER FEMALE
     Dosage: NUMBER OF CYCLE ? 6, FREQUENCY: EVERY 3 WEEKS.
     Route: 042
     Dates: start: 20140821, end: 20141126
  4. HERCEPTIN [Suspect]
     Active Substance: TRASTUZUMAB
     Indication: BREAST CANCER FEMALE
     Dosage: 6MG/KG EVERY 3 WEEKS
     Route: 042
     Dates: start: 20140821, end: 20141126
  5. DOCETAXEL ACTAVIS [Suspect]
     Active Substance: DOCETAXEL
     Indication: BREAST CANCER FEMALE
     Dosage: NUMBER OF CYCLE ? 6, FREQUENCY: EVERY 3 WEEKS, DOSAGE: 130MG
     Route: 042
     Dates: start: 20140821, end: 20141126
  6. DOCETAXEL SAGENT [Suspect]
     Active Substance: DOCETAXEL
     Indication: BREAST CANCER FEMALE
     Dosage: 20MG/ML VIAL, NUMBER OF CYCLE ? 6, FREQUENCY: EVERY 3 WEEKS, DOSAGE: 130MG
     Route: 042
     Dates: start: 20140821, end: 20141126
  7. PERJETA [Suspect]
     Active Substance: PERTUZUMAB
     Indication: BREAST CANCER FEMALE
     Dosage: 420MG/14ML EVERY 3 WEEKS
     Route: 042
     Dates: start: 20140821, end: 20141126

REACTIONS (4)
  - Hair colour changes [Not Recovered/Not Resolved]
  - Alopecia areata [Not Recovered/Not Resolved]
  - Hair texture abnormal [Not Recovered/Not Resolved]
  - Madarosis [Not Recovered/Not Resolved]

NARRATIVE: CASE EVENT DATE: 201411
